FAERS Safety Report 24684723 (Version 1)
Quarter: 2024Q4

REPORT INFORMATION
  Report Type: Spontaneous
  Country: IN (occurrence: IN)
  Receive Date: 20241202
  Receipt Date: 20241202
  Transmission Date: 20250115
  Serious: Yes (Other)
  Sender: ALKEM
  Company Number: IN-ALKEM LABORATORIES LIMITED-IN-ALKEM-2024-15669

PATIENT
  Age: 3 Year
  Sex: Female

DRUGS (10)
  1. ISONIAZID [Suspect]
     Active Substance: ISONIAZID
     Indication: Meningitis tuberculous
     Dosage: 10 MILLIGRAM/KILOGRAM, QD
     Route: 065
  2. AMIKACIN [Concomitant]
     Active Substance: AMIKACIN
     Indication: Meningitis tuberculous
     Dosage: 15 MILLIGRAM/KILOGRAM, QD
     Route: 065
  3. CYCLOSERINE [Concomitant]
     Active Substance: CYCLOSERINE
     Indication: Meningitis tuberculous
     Dosage: 15 MILLIGRAM/KILOGRAM, QD
     Route: 065
  4. ETHAMBUTOL [Concomitant]
     Active Substance: ETHAMBUTOL HYDROCHLORIDE
     Indication: Meningitis tuberculous
     Dosage: 20 MILLIGRAM/KILOGRAM, QD
     Route: 065
  5. ETHIONAMIDE [Concomitant]
     Active Substance: ETHIONAMIDE
     Indication: Meningitis tuberculous
     Dosage: 20 MILLIGRAM/KILOGRAM, QD
     Route: 065
  6. MOXIFLOXACIN [Concomitant]
     Active Substance: MOXIFLOXACIN
     Indication: Meningitis tuberculous
     Dosage: 10 MILLIGRAM/KILOGRAM, QD
     Route: 065
  7. PARA-AMINOSALICYLIC ACID [Concomitant]
     Active Substance: AMINOSALICYLIC ACID
     Indication: Meningitis tuberculous
     Dosage: 150 MILLIGRAM/KILOGRAM, QD
     Route: 065
  8. PREDNISOLONE [Concomitant]
     Active Substance: PREDNISOLONE
     Indication: Meningitis tuberculous
     Dosage: 2 MILLIGRAM/KILOGRAM, QD
     Route: 065
  9. PYRAZINAMIDE [Concomitant]
     Active Substance: PYRAZINAMIDE
     Indication: Meningitis tuberculous
     Dosage: 35 MILLIGRAM/KILOGRAM, QD
     Route: 065
  10. RIFAMPIN [Concomitant]
     Active Substance: RIFAMPIN
     Indication: Meningitis tuberculous
     Dosage: 10 MILLIGRAM/KILOGRAM, QD
     Route: 065

REACTIONS (1)
  - Pancreatitis acute [Recovered/Resolved]
